FAERS Safety Report 13498103 (Version 4)
Quarter: 2017Q3

REPORT INFORMATION
  Report Type: Report from Study
  Country: US (occurrence: US)
  Receive Date: 20170428
  Receipt Date: 20170830
  Transmission Date: 20171127
  Serious: Yes (Death, Life-Threatening, Hospitalization, Other)
  Sender: FDA-Public Use
  Company Number: US-BRISTOL-MYERS SQUIBB COMPANY-BMS-2017-035908

PATIENT
  Sex: Male

DRUGS (1)
  1. NIVOLUMAB [Suspect]
     Active Substance: NIVOLUMAB
     Indication: LUNG NEOPLASM MALIGNANT
     Route: 042

REACTIONS (5)
  - Malignant peritoneal neoplasm [Fatal]
  - White blood cell count decreased [Unknown]
  - Malignant neoplasm progression [Unknown]
  - Abdominal cavity drainage [Unknown]
  - Ascites [Unknown]
